FAERS Safety Report 23515380 (Version 1)
Quarter: 2024Q1

REPORT INFORMATION
  Report Type: Spontaneous
  Country: CO (occurrence: CO)
  Receive Date: 20240213
  Receipt Date: 20240213
  Transmission Date: 20240410
  Serious: Yes (Death, Other)
  Sender: FDA-Public Use
  Company Number: CO-AMGEN-COLSP2024026322

PATIENT
  Age: 50 Year
  Sex: Female

DRUGS (4)
  1. ADALIMUMAB [Suspect]
     Active Substance: ADALIMUMAB\ISOPROPYL ALCOHOL
     Indication: Ankylosing spondylitis
     Dosage: UNK
     Route: 065
  2. ADALIMUMAB [Suspect]
     Active Substance: ADALIMUMAB\ISOPROPYL ALCOHOL
     Indication: Polychondritis
  3. PREDNISOLONE [Concomitant]
     Active Substance: PREDNISOLONE
     Indication: Iridocyclitis
     Dosage: UNK
     Route: 061
  4. METHOTREXATE [Concomitant]
     Active Substance: METHOTREXATE
     Indication: Polychondritis
     Dosage: 25 MILLIGRAM, QWK
     Route: 065

REACTIONS (4)
  - Central nervous system vasculitis [Fatal]
  - Deafness neurosensory [Unknown]
  - Ankylosing spondylitis [Unknown]
  - Visual acuity reduced [Unknown]
